FAERS Safety Report 8480206-5 (Version None)
Quarter: 2012Q2

REPORT INFORMATION
  Report Type: 
  Country: None (occurrence: None)
  Receive Date: 20120629
  Receipt Date: 20120622
  Transmission Date: 20120825
  Serious: Yes (Life-Threatening, Hospitalization, Disabling, Other)
  Sender: FDA-Public Use
  Company Number: US-MERCK-1206USA01568

PATIENT
  Age: 40 Year
  Sex: Female

DRUGS (13)
  1. PROTONIX [Concomitant]
     Indication: ABDOMINAL PAIN UPPER
     Route: 065
     Dates: start: 20090201
  2. VITAMIN D (UNSPECIFIED) [Concomitant]
     Indication: OSTEOPENIA
     Route: 065
     Dates: start: 20090401
  3. EFFEXOR [Concomitant]
     Indication: ANXIETY
     Route: 065
     Dates: start: 20010101
  4. CALCIUM (UNSPECIFIED) [Concomitant]
     Indication: OSTEOPENIA
     Route: 065
     Dates: start: 20090401
  5. INSULIN [Concomitant]
     Route: 065
  6. XANAX [Concomitant]
     Route: 065
  7. ASPIRIN [Concomitant]
     Indication: PROPHYLAXIS
     Route: 065
  8. CAPTOPRIL [Concomitant]
     Indication: BLOOD PRESSURE
     Route: 065
     Dates: start: 19990101
  9. VITAMINS (UNSPECIFIED) [Concomitant]
     Route: 065
  10. NAPROXEN SODIUM [Suspect]
     Route: 065
  11. FOSAMAX [Suspect]
     Indication: OSTEOPOROSIS
     Route: 048
     Dates: start: 20090405
  12. EFFEXOR [Concomitant]
     Indication: DEPRESSION
     Route: 065
     Dates: start: 20010101
  13. LEVOTHYROXINE SODIUM [Concomitant]
     Indication: HYPOTHYROIDISM
     Route: 065
     Dates: start: 19990101

REACTIONS (8)
  - ADVERSE EVENT [None]
  - UNDERDOSE [None]
  - CHOLECYSTITIS ACUTE [None]
  - THROMBOTIC THROMBOCYTOPENIC PURPURA [None]
  - DRUG HYPERSENSITIVITY [None]
  - HAEMOLYTIC URAEMIC SYNDROME [None]
  - NEPHRITIS [None]
  - ABDOMINAL DISCOMFORT [None]
